FAERS Safety Report 9376315 (Version 1)
Quarter: 2013Q3

REPORT INFORMATION
  Report Type: Spontaneous
  Country: NL (occurrence: NL)
  Receive Date: 20130701
  Receipt Date: 20130701
  Transmission Date: 20140515
  Serious: Yes (Other)
  Sender: FDA-Public Use
  Company Number: NL-009507513-1306NLD011040

PATIENT
  Age: 71 Year
  Sex: Female

DRUGS (2)
  1. SINEMET CR [Suspect]
     Indication: INTERMITTENT CLAUDICATION
     Dosage: 250 MG, QID
     Route: 048
  2. SINEMET CR [Suspect]
     Indication: NERVOUS SYSTEM DISORDER

REACTIONS (2)
  - Neoplasm malignant [Recovered/Resolved]
  - Drug ineffective [Not Recovered/Not Resolved]
